FAERS Safety Report 5063199-2 (Version None)
Quarter: 2006Q3

REPORT INFORMATION
  Report Type: 
  Country: None (occurrence: None)
  Receive Date: 20060725
  Receipt Date: 20060725
  Transmission Date: 20061208
  Serious: Yes (Other)
  Sender: FDA-Public Use
  Company Number: None

PATIENT
  Age: 18 Year
  Sex: Female
  Weight: 74.8435 kg

DRUGS (1)
  1. CLARAVIS [Suspect]
     Indication: ACNE
     Dosage: 60 MG DAILY PO
     Route: 048
     Dates: start: 20060624, end: 20060625

REACTIONS (8)
  - BODY TEMPERATURE INCREASED [None]
  - CRYING [None]
  - FALL [None]
  - HEADACHE [None]
  - INAPPROPRIATE SCHEDULE OF DRUG ADMINISTRATION [None]
  - PAIN [None]
  - THINKING ABNORMAL [None]
  - TREATMENT NONCOMPLIANCE [None]
